FAERS Safety Report 8005641-0 (Version None)
Quarter: 2011Q4

REPORT INFORMATION
  Report Type: 
  Country: None (occurrence: None)
  Receive Date: 20111223
  Receipt Date: 20111031
  Transmission Date: 20120403
  Serious: Yes (Other)
  Sender: FDA-Public Use
  Company Number: US-PURDUE-USA-2011-0080005

PATIENT
  Sex: Male

DRUGS (1)
  1. OXYCONTIN [Suspect]
     Indication: BACK DISORDER
     Dosage: UNK
     Dates: start: 20070101, end: 20090101

REACTIONS (9)
  - SUICIDAL IDEATION [None]
  - DEPRESSION [None]
  - PANIC ATTACK [None]
  - AMNESIA [None]
  - HALLUCINATION, AUDITORY [None]
  - INSOMNIA [None]
  - NERVOUS SYSTEM DISORDER [None]
  - MUSCULAR WEAKNESS [None]
  - MENTAL DISORDER [None]
